FAERS Safety Report 4331792-8 (Version None)
Quarter: 2004Q2

REPORT INFORMATION
  Report Type: 
  Country: None (occurrence: None)
  Receive Date: 20040405
  Receipt Date: 20030815
  Transmission Date: 20050107
  Serious: No
  Sender: FDA-Public Use
  Company Number: US-GLAXOSMITHKLINE-A0422855A

PATIENT
  Sex: Female

DRUGS (1)
  1. FLOVENT [Suspect]
     Indication: ILL-DEFINED DISORDER
     Dosage: 44MCG UNKNOWN
     Route: 055
     Dates: start: 20030101

REACTIONS (4)
  - AGITATION [None]
  - INSOMNIA [None]
  - NERVOUSNESS [None]
  - TREMOR [None]
